FAERS Safety Report 5814789-8 (Version None)
Quarter: 2008Q3

REPORT INFORMATION
  Report Type: 
  Country: None (occurrence: None)
  Receive Date: 20080718
  Receipt Date: 20080710
  Transmission Date: 20090109
  Serious: Yes (Death)
  Sender: FDA-Public Use
  Company Number: US-AVENTIS-200814210US

PATIENT
  Sex: Female
  Weight: 71.36 kg

DRUGS (22)
  1. LOVENOX [Suspect]
     Route: 051
     Dates: start: 20080621, end: 20080624
  2. LOVENOX [Suspect]
     Route: 051
     Dates: start: 20080625, end: 20080627
  3. LOVENOX [Suspect]
     Route: 051
     Dates: start: 20080627, end: 20080702
  4. METFORMIN HCL [Concomitant]
     Route: 048
  5. GLIPIZIDE [Concomitant]
     Route: 048
  6. SIMVASTATIN [Concomitant]
  7. LISINOPRIL [Concomitant]
  8. TRAMADOL HCL [Concomitant]
     Dosage: DOSE: UNK
  9. NEXIUM [Concomitant]
     Route: 048
  10. M.V.I. [Concomitant]
     Dosage: DOSE QUANTITY: 1
     Route: 048
  11. VICODIN [Concomitant]
     Indication: PAIN
     Dosage: DOSE: 1-2 TABLETS Q4H
     Route: 048
  12. NIFEREX                            /01214501/ [Concomitant]
     Route: 048
  13. LEVAQUIN [Concomitant]
     Route: 048
  14. INSULIN [Concomitant]
     Dosage: DOSE: AS PER GLUCOMETER
  15. TYLENOL [Concomitant]
     Dates: start: 20080627, end: 20080702
  16. DULCOLAX                           /00061602/ [Concomitant]
     Dosage: DOSE QUANTITY: 1
     Dates: start: 20080624, end: 20080702
  17. GLUCATROL [Concomitant]
  18. VISTARIL                           /00058402/ [Concomitant]
  19. CEFACLOR [Concomitant]
     Route: 048
  20. THERAGRAN                          /00554301/ [Concomitant]
     Dosage: DOSE QUANTITY: 1
     Route: 048
  21. LORTAB [Concomitant]
     Dosage: DOSE: 10/500
  22. GLUCOPHAGE [Concomitant]
     Dates: start: 20080624, end: 20080702

REACTIONS (3)
  - CARDIAC ARREST [None]
  - NAUSEA [None]
  - THROMBOCYTHAEMIA [None]
